FAERS Safety Report 22006150 (Version 1)
Quarter: 2023Q1

REPORT INFORMATION
  Report Type: Spontaneous
  Country: FR (occurrence: None)
  Receive Date: 20230217
  Receipt Date: 20230217
  Transmission Date: 20230418
  Serious: Yes (Life-Threatening)
  Sender: FDA-Public Use
  Company Number: 2023A039155

PATIENT
  Age: 13 Year
  Sex: Female
  Weight: 60 kg

DRUGS (4)
  1. ESOMEPRAZOLE [Suspect]
     Active Substance: ESOMEPRAZOLE
     Indication: Intentional overdose
     Dosage: 560.0MG ONCE/SINGLE ADMINISTRATION
     Route: 048
     Dates: start: 20210821, end: 20210821
  2. PREDNISOLONE SODIUM METAZOATE [Suspect]
     Active Substance: PREDNISOLONE SODIUM METAZOATE
     Indication: Intentional overdose
     Dosage: 50.0MG ONCE/SINGLE ADMINISTRATION
     Route: 048
     Dates: start: 20210821, end: 20210821
  3. DESLORATADINE [Suspect]
     Active Substance: DESLORATADINE
     Indication: Intentional overdose
     Dosage: 30 CPS 5 MG150.0MG ONCE/SINGLE ADMINISTRATION
     Route: 048
     Dates: start: 20210821, end: 20210821
  4. ALPRAZOLAM [Suspect]
     Active Substance: ALPRAZOLAM
     Indication: Intentional overdose
     Dosage: 30 CPS OF 0.25 MG7.5MG ONCE/SINGLE ADMINISTRATION
     Route: 048
     Dates: start: 20210821, end: 20210821

REACTIONS (2)
  - Intentional overdose [Recovered/Resolved]
  - Coma [Unknown]

NARRATIVE: CASE EVENT DATE: 20210821
